FAERS Safety Report 10142804 (Version 1)
Quarter: 2014Q2

REPORT INFORMATION
  Report Type: Report from Study
  Country: US (occurrence: US)
  Receive Date: 20140430
  Receipt Date: 20140430
  Transmission Date: 20141212
  Serious: Yes (Other)
  Sender: FDA-Public Use
  Company Number: US-ROCHE-1387782

PATIENT
  Age: 14 Year
  Sex: Male
  Weight: 49.9 kg

DRUGS (8)
  1. NUTROPIN AQ [Suspect]
     Indication: BODY HEIGHT BELOW NORMAL
     Route: 058
  2. NUTROPIN AQ [Suspect]
     Indication: NEPHROPATHY
  3. CELLCEPT [Suspect]
     Indication: RENAL TRANSPLANT
     Dosage: FREQUENCY : EVERYDAY, 200 MG IN AM AND 300 MG IN PM.
     Route: 048
  4. VITAMIN C [Concomitant]
     Route: 048
  5. MAGNESIUM OXIDE [Concomitant]
     Route: 065
  6. DELTASONE [Concomitant]
     Route: 048
  7. PROGRAF [Concomitant]
     Dosage: 1 DF DURING EVENING
     Route: 065
  8. PROGRAF [Concomitant]
     Dosage: 2 DF 2 TIMES DAILY.
     Route: 065

REACTIONS (3)
  - Hydronephrosis [Unknown]
  - Cough [Unknown]
  - Constipation [Unknown]
